FAERS Safety Report 4334342-5 (Version None)
Quarter: 2004Q2

REPORT INFORMATION
  Report Type: 
  Country: None (occurrence: None)
  Receive Date: 20040405
  Receipt Date: 20040323
  Transmission Date: 20050107
  Serious: Yes (Hospitalization)
  Sender: FDA-Public Use
  Company Number: 6008060

PATIENT
  Age: 59 Year
  Sex: Female

DRUGS (2)
  1. METFORMIN HCL [Suspect]
     Indication: DIABETES MELLITUS NON-INSULIN-DEPENDENT
     Dates: start: 19990101
  2. BLINDED STUDY MEDICATION [Suspect]
     Indication: DIABETES MELLITUS NON-INSULIN-DEPENDENT
     Dosage: ORAL
     Route: 048
     Dates: start: 20031113

REACTIONS (4)
  - CIRCULATORY COLLAPSE [None]
  - FALL [None]
  - LIMB INJURY [None]
  - UPPER LIMB FRACTURE [None]
